FAERS Safety Report 8244377 (Version 3)
Quarter: 2015Q4

REPORT INFORMATION
  Report Type: Spontaneous
  Country: US (occurrence: US)
  Receive Date: 20111115
  Receipt Date: 20151023
  Transmission Date: 20160305
  Serious: Yes (Hospitalization)
  Sender: FDA-Public Use
  Company Number: US-BAYER-2011-107448

PATIENT
  Age: 32 Year
  Sex: Female
  Weight: 60.32 kg

DRUGS (9)
  1. METHADONE [Concomitant]
     Active Substance: METHADONE HYDROCHLORIDE
     Indication: FIBROMYALGIA
     Dosage: 30 MG, TID
     Route: 048
     Dates: start: 2000
  2. HERBAL NOS [Concomitant]
     Active Substance: HERBALS
  3. ACTIQ [Concomitant]
     Active Substance: FENTANYL CITRATE
     Indication: FIBROMYALGIA
  4. MS CONTIN [Concomitant]
     Active Substance: MORPHINE SULFATE
     Indication: FIBROMYALGIA
  5. OXYFAST [Concomitant]
     Active Substance: OXYCODONE
     Indication: FIBROMYALGIA
  6. YASMIN [Suspect]
     Active Substance: DROSPIRENONE\ETHINYL ESTRADIOL
     Dosage: UNK
     Route: 048
     Dates: start: 20030922, end: 200310
  7. NSAID^S [Concomitant]
     Active Substance: UNSPECIFIED INGREDIENT
  8. VITAMIN C [Concomitant]
     Active Substance: ASCORBIC ACID
  9. ZANAFLEX [Concomitant]
     Active Substance: TIZANIDINE HYDROCHLORIDE
     Indication: FIBROMYALGIA

REACTIONS (8)
  - Monoparesis [None]
  - Thrombosis [None]
  - Migraine [None]
  - Emotional distress [None]
  - Transient ischaemic attack [None]
  - Memory impairment [None]
  - Amenorrhoea [None]
  - Pain [None]

NARRATIVE: CASE EVENT DATE: 20030922
